FAERS Safety Report 7656070-0 (Version None)
Quarter: 2011Q3

REPORT INFORMATION
  Report Type: 
  Country: None (occurrence: None)
  Receive Date: 20110804
  Receipt Date: 20110726
  Transmission Date: 20111222
  Serious: Yes (Other)
  Sender: FDA-Public Use
  Company Number: FR-ELI_LILLY_AND_COMPANY-FR201102006993

PATIENT
  Age: 52 Year
  Sex: Male
  Weight: 94 kg

DRUGS (2)
  1. CIALIS [Suspect]
     Indication: ERECTILE DYSFUNCTION
     Dosage: 5 MG, DAILY (1/D)
     Route: 048
     Dates: start: 20080101, end: 20110101
  2. CIALIS [Suspect]
     Dosage: 5 MG, EVERY 2-3 DAYS
     Dates: start: 20110303

REACTIONS (1)
  - RETINAL VEIN THROMBOSIS [None]
